FAERS Safety Report 7828486-0 (Version None)
Quarter: 2011Q4

REPORT INFORMATION
  Report Type: 
  Country: None (occurrence: None)
  Receive Date: 20111020
  Receipt Date: 20111018
  Transmission Date: 20120403
  Serious: Yes (Hospitalization)
  Sender: FDA-Public Use
  Company Number: ES-MERCK-1110ESP00038

PATIENT
  Age: 67 Year
  Sex: Female

DRUGS (2)
  1. COZAAR [Suspect]
     Indication: CARDIAC VALVE DISEASE
     Route: 048
     Dates: start: 20100101, end: 20110218
  2. CARVEDILOL [Suspect]
     Indication: CARDIAC VALVE DISEASE
     Route: 065
     Dates: start: 20100101, end: 20110218

REACTIONS (2)
  - CARDIAC FAILURE CONGESTIVE [None]
  - ATRIAL FIBRILLATION [None]
